FAERS Safety Report 9496979 (Version 1)
Quarter: 2013Q3

REPORT INFORMATION
  Report Type: Spontaneous
  Country: DE (occurrence: None)
  Receive Date: 20130830
  Receipt Date: 20130830
  Transmission Date: 20140515
  Serious: Yes (Life-Threatening, Hospitalization)
  Sender: FDA-Public Use
  Company Number: 1308-1091

PATIENT
  Age: 93 Year
  Sex: Male

DRUGS (4)
  1. EYLEA [Suspect]
     Indication: AGE-RELATED MACULAR DEGENERATION
     Route: 031
     Dates: start: 20130325, end: 20130522
  2. CIALIS [Suspect]
     Indication: ERECTILE DYSFUNCTION
     Dates: start: 200711
  3. LISINOPRIL/HYDROCHLOROTHIAZIDE (CARACE PLUS /01613901/) [Concomitant]
  4. VIAGRA (SILFENAFIL CITRATE) [Concomitant]

REACTIONS (3)
  - Cerebral infarction [None]
  - Acute myocardial infarction [None]
  - Dementia [None]
